FAERS Safety Report 19416339 (Version 2)
Quarter: 2021Q2

REPORT INFORMATION
  Report Type: Spontaneous
  Country: US (occurrence: US)
  Receive Date: 20210614
  Receipt Date: 20210630
  Transmission Date: 20210717
  Serious: Yes (Other)
  Sender: FDA-Public Use
  Company Number: US-GILEAD-2021-0535367

PATIENT
  Sex: Male

DRUGS (26)
  1. VIREAD [Concomitant]
     Active Substance: TENOFOVIR DISOPROXIL FUMARATE
     Dosage: UNK
     Dates: end: 2021
  2. SELENIUM [Concomitant]
     Active Substance: SELENIUM
     Dosage: UNK
     Dates: start: 1998
  3. CHROMIUM GTF [Concomitant]
     Dosage: UNK
     Dates: start: 20210516
  4. VEMLIDY [Suspect]
     Active Substance: TENOFOVIR ALAFENAMIDE FUMARATE
     Dosage: UNK
     Route: 065
     Dates: start: 202103
  5. NORVIR [Concomitant]
     Active Substance: RITONAVIR
     Dosage: UNK
     Dates: start: 199704
  6. N ACETYL CYSTEINE [Concomitant]
     Active Substance: ACETYLCYSTEINE
  7. VIREAD [Concomitant]
     Active Substance: TENOFOVIR DISOPROXIL FUMARATE
     Dosage: UNK
     Dates: end: 202003
  8. PANTOTHENIC ACID [Concomitant]
     Active Substance: PANTOTHENIC ACID
  9. INTELENCE [Concomitant]
     Active Substance: ETRAVIRINE
     Dosage: UNK
     Dates: start: 200804
  10. VITAMIN B2 [Concomitant]
     Active Substance: RIBOFLAVIN
  11. GLUCOSAMINE SULFATE [Concomitant]
     Active Substance: GLUCOSAMINE SULFATE
  12. CHONDROITIN [Concomitant]
     Active Substance: CHONDROITIN
  13. CALCIUM CITRATE [Concomitant]
     Active Substance: CALCIUM CITRATE
     Dosage: UNK
     Dates: start: 20200511
  14. VEMLIDY [Suspect]
     Active Substance: TENOFOVIR ALAFENAMIDE FUMARATE
     Indication: PRODUCT USED FOR UNKNOWN INDICATION
     Dosage: UNK
     Route: 065
     Dates: end: 202006
  15. DHA [Concomitant]
     Active Substance: DIETARY SUPPLEMENT
     Dosage: UNK
     Dates: start: 20210511
  16. ZINC. [Concomitant]
     Active Substance: ZINC
     Dosage: UNK
     Dates: start: 1998
  17. NIACINAMIDE [Concomitant]
     Active Substance: NIACINAMIDE
  18. MSM [METHYLSULFONYLMETHANE] [Concomitant]
  19. ISENTRESS [Concomitant]
     Active Substance: RALTEGRAVIR POTASSIUM
     Dosage: UNK
     Dates: start: 200804
  20. VITAMIN D3 [Concomitant]
     Active Substance: CHOLECALCIFEROL
     Dosage: UNK
     Dates: start: 201804
  21. VITAMIN D3 [Concomitant]
     Active Substance: CHOLECALCIFEROL
     Dosage: UNK
     Dates: start: 20210511
  22. COENZYME Q10 [Concomitant]
     Active Substance: DIETARY SUPPLEMENT\UBIDECARENONE
  23. VALACYCLOVIR [Concomitant]
     Active Substance: VALACYCLOVIR HYDROCHLORIDE
     Dosage: UNK
     Dates: start: 2010
  24. PREZISTA [Concomitant]
     Active Substance: DARUNAVIR ETHANOLATE
     Dosage: UNK
     Dates: start: 200804
  25. NIACIN. [Concomitant]
     Active Substance: NIACIN
     Dosage: UNK
     Dates: start: 201804
  26. BENFOTIAMIN [Concomitant]
     Dosage: UNK
     Dates: start: 20200511

REACTIONS (4)
  - Decreased appetite [Not Recovered/Not Resolved]
  - Diabetes mellitus [Not Recovered/Not Resolved]
  - Abdominal distension [Not Recovered/Not Resolved]
  - Weight increased [Not Recovered/Not Resolved]
